FAERS Safety Report 5960524-2 (Version None)
Quarter: 2008Q4

REPORT INFORMATION
  Report Type: 
  Country: None (occurrence: None)
  Receive Date: 20081120
  Receipt Date: 20080409
  Transmission Date: 20090506
  Serious: No
  Sender: FDA-Public Use
  Company Number: US-ABBOTT-08P-163-0446452-00

PATIENT
  Sex: Female
  Weight: 122.58 kg

DRUGS (2)
  1. BIAXIN [Suspect]
     Indication: BRONCHITIS
     Route: 048
     Dates: start: 20080320, end: 20080330
  2. PREDNISONE TAB [Concomitant]
     Indication: BRONCHITIS
     Route: 048
     Dates: start: 20080320

REACTIONS (2)
  - FUNGAL INFECTION [None]
  - VAGINITIS BACTERIAL [None]
